FAERS Safety Report 4343419-X (Version None)
Quarter: 2004Q1

REPORT INFORMATION
  Report Type: 
  Country: None (occurrence: None)
  Receive Date: 20040325
  Receipt Date: 20040119
  Transmission Date: 20041129
  Serious: No
  Sender: FDA-Public Use
  Company Number: USA040156692

PATIENT
  Age: 65 Year
  Sex: Female
  Weight: 57 kg

DRUGS (11)
  1. FORTEO [Suspect]
     Indication: OSTEOPOROSIS
     Dosage: 20 UG/DAY
     Dates: start: 20040113
  2. PREDNISONE [Concomitant]
  3. PLAQUENIL [Concomitant]
  4. NORVASC [Concomitant]
  5. FUROSEMIDE [Concomitant]
  6. POTASSIUM [Concomitant]
  7. VITAMIN D [Concomitant]
  8. CLINDAMYCIN HCL [Concomitant]
  9. ZANTAC [Concomitant]
  10. VITAMIN C [Concomitant]
  11. VITAMIN CAP [Concomitant]

REACTIONS (3)
  - BACK PAIN [None]
  - DRY MOUTH [None]
  - HEART RATE INCREASED [None]
